FAERS Safety Report 5636530-4 (Version None)
Quarter: 2008Q1

REPORT INFORMATION
  Report Type: 
  Country: None (occurrence: None)
  Receive Date: 20080219
  Receipt Date: 20080219
  Transmission Date: 20080703
  Serious: Yes (Other)
  Sender: FDA-Public Use
  Company Number: None

PATIENT
  Age: 57 Year
  Sex: Male
  Weight: 72.5755 kg

DRUGS (2)
  1. VYTORIN [Suspect]
     Indication: BLOOD CHOLESTEROL
     Dosage: ONCE A DAY
     Dates: start: 20070717, end: 20071221
  2. VYTORIN [Suspect]
     Indication: BLOOD TRIGLYCERIDES
     Dosage: ONCE A DAY
     Dates: start: 20070717, end: 20071221

REACTIONS (2)
  - CHEST PAIN [None]
  - DRUG EFFECT DECREASED [None]
